FAERS Safety Report 6795425-3 (Version None)
Quarter: 2010Q2

REPORT INFORMATION
  Report Type: 
  Country: None (occurrence: None)
  Receive Date: 20100520
  Receipt Date: 20090713
  Transmission Date: 20101027
  Serious: Yes (Other)
  Sender: FDA-Public Use
  Company Number: 2009239961

PATIENT
  Age: 55 Year
  Sex: Female
  Weight: 86 kg

DRUGS (6)
  1. PROVERA [Suspect]
     Indication: HORMONE REPLACEMENT THERAPY
     Dosage: 10 MG, ORAL; 2.5 MG ORAL; 5 MG ORAL
     Route: 048
     Dates: start: 19900301, end: 19910906
  2. PROVERA [Suspect]
     Indication: HORMONE REPLACEMENT THERAPY
     Dosage: 10 MG, ORAL; 2.5 MG ORAL; 5 MG ORAL
     Route: 048
     Dates: start: 19890119, end: 19930507
  3. PROVERA [Suspect]
     Indication: HORMONE REPLACEMENT THERAPY
     Dosage: 10 MG, ORAL; 2.5 MG ORAL; 5 MG ORAL
     Route: 048
     Dates: start: 19930507, end: 19930901
  4. PREMARIN [Suspect]
     Indication: HORMONE REPLACEMENT THERAPY
     Dosage: 0.625 MG; 0.3 MG
     Dates: start: 19890119, end: 19930115
  5. PREMARIN [Suspect]
     Indication: HORMONE REPLACEMENT THERAPY
     Dosage: 0.625 MG; 0.3 MG
     Dates: start: 19920121, end: 19930901
  6. ESTRADERM [Suspect]
     Indication: HORMONE REPLACEMENT THERAPY
     Dates: start: 19910906, end: 19911030

REACTIONS (1)
  - BREAST CANCER [None]
